FAERS Safety Report 14557981 (Version 1)
Quarter: 2018Q1

REPORT INFORMATION
  Report Type: Spontaneous
  Country: US (occurrence: US)
  Receive Date: 20180221
  Receipt Date: 20180221
  Transmission Date: 20180509
  Serious: Yes (Hospitalization, Other)
  Sender: FDA-Public Use
  Company Number: US-DRREDDYS-USA/USA/17/0094969

PATIENT
  Age: 54 Year
  Sex: Female

DRUGS (5)
  1. ANASTROZOLE. [Suspect]
     Active Substance: ANASTROZOLE
     Indication: PRODUCT USED FOR UNKNOWN INDICATION
     Route: 065
  2. FLUOROURACIL. [Suspect]
     Active Substance: FLUOROURACIL
     Indication: BREAST CANCER
     Route: 065
  3. CYCLOPHOSPHAMIDE. [Suspect]
     Active Substance: CYCLOPHOSPHAMIDE
     Indication: BREAST CANCER
     Route: 065
  4. PACLITAXEL. [Suspect]
     Active Substance: PACLITAXEL
     Indication: BREAST CANCER
     Route: 065
     Dates: start: 20160427, end: 20160630
  5. METHOTREXATE. [Suspect]
     Active Substance: METHOTREXATE
     Indication: BREAST CANCER
     Route: 065

REACTIONS (8)
  - Nephrolithiasis [Unknown]
  - Neutropenia [Unknown]
  - Adverse event [Unknown]
  - Neutropenic colitis [Unknown]
  - Gardnerella infection [Recovering/Resolving]
  - Bacteraemia [Recovering/Resolving]
  - Pleural effusion [Unknown]
  - Breast cancer metastatic [Unknown]
